FAERS Safety Report 5147292-1 (Version None)
Quarter: 2006Q4

REPORT INFORMATION
  Report Type: 
  Country: None (occurrence: None)
  Receive Date: 20061103
  Receipt Date: 20061023
  Transmission Date: 20070319
  Serious: Yes (Hospitalization, Other)
  Sender: FDA-Public Use
  Company Number: 2006129667

PATIENT
  Age: 35 Year
  Sex: Female
  Weight: 120.6568 kg

DRUGS (5)
  1. XANAX [Suspect]
     Indication: ANXIETY
     Dates: start: 19840101
  2. XANAX [Suspect]
     Indication: PANIC ATTACK
     Dates: start: 19840101
  3. ADAVIN (NICERGOLINE) [Suspect]
     Dates: start: 19900401, end: 19901101
  4. TENORMIN [Concomitant]
  5. ACETAMINOPHEN [Concomitant]

REACTIONS (8)
  - BEDRIDDEN [None]
  - BENIGN BREAST NEOPLASM [None]
  - BONE PAIN [None]
  - CONVULSION [None]
  - NEUROPATHY PERIPHERAL [None]
  - PARAESTHESIA [None]
  - PARALYSIS [None]
  - WALKING AID USER [None]
